FAERS Safety Report 16213640 (Version 1)
Quarter: 2019Q2

REPORT INFORMATION
  Report Type: Spontaneous
  Country: GB (occurrence: GB)
  Receive Date: 20190418
  Receipt Date: 20190418
  Transmission Date: 20190711
  Serious: Yes (Other)
  Sender: FDA-Public Use
  Company Number: GB-UNICHEM PHARMACEUTICALS (USA) INC-UCM201904-000130

PATIENT
  Age: 71 Year
  Sex: Male

DRUGS (8)
  1. SACUBITRIL [Suspect]
     Active Substance: SACUBITRIL
     Dosage: 49 MG
  2. MEXILETINE [Suspect]
     Active Substance: MEXILETINE
  3. RAMIPRIL. [Concomitant]
     Active Substance: RAMIPRIL
  4. AMIODARONE [Concomitant]
     Active Substance: AMIODARONE
     Dosage: OVER 24 HOURS
  5. EPLERENONE. [Concomitant]
     Active Substance: EPLERENONE
  6. VALSARTAN. [Suspect]
     Active Substance: VALSARTAN
     Dosage: 51 MG
  7. BISOPROLOL FUMARATE. [Suspect]
     Active Substance: BISOPROLOL FUMARATE
  8. AMIODARONE [Concomitant]
     Active Substance: AMIODARONE
     Indication: VENTRICULAR TACHYCARDIA
     Dosage: UNKNOWN

REACTIONS (5)
  - Insomnia [Unknown]
  - Fatigue [Unknown]
  - Drug interaction [Unknown]
  - Drug intolerance [Unknown]
  - Ventricular arrhythmia [Recovered/Resolved]
